FAERS Safety Report 22806118 (Version 2)
Quarter: 2024Q3

REPORT INFORMATION
  Report Type: Spontaneous
  Country: US (occurrence: US)
  Receive Date: 20230809
  Receipt Date: 20240815
  Transmission Date: 20241016
  Serious: Yes (Other)
  Sender: BIOCODEX
  Company Number: US-BIOCODEX2-2023001114

PATIENT
  Sex: Male
  Weight: 44.9 kg

DRUGS (2)
  1. DIACOMIT [Suspect]
     Active Substance: STIRIPENTOL
     Indication: Severe myoclonic epilepsy of infancy
     Dosage: 500 MG, 500 MG, AND 1000 MG BY ?MOUTH IN THREE SEPARATE DOSES ?EACH DAY
     Route: 048
  2. DIACOMIT [Suspect]
     Active Substance: STIRIPENTOL
     Indication: Severe myoclonic epilepsy of infancy
     Dosage: 500 MG, 500 MG, AND 1000 MG BY ?MOUTH IN THREE SEPARATE DOSES ?EACH DAY
     Route: 048

REACTIONS (1)
  - Change in seizure presentation [Recovered/Resolved]
